FAERS Safety Report 10029280 (Version 2)
Quarter: 2014Q2

REPORT INFORMATION
  Report Type: Spontaneous
  Country: JP (occurrence: JP)
  Receive Date: 20140321
  Receipt Date: 20140415
  Transmission Date: 20141212
  Serious: Yes (Hospitalization)
  Sender: FDA-Public Use
  Company Number: PHHY2014JP033841

PATIENT
  Sex: Male

DRUGS (2)
  1. EXELON PATCH [Suspect]
     Indication: DEMENTIA ALZHEIMER^S TYPE
     Dosage: 9.5 MG/24 HOURS (18 MG DAILY)
     Route: 062
     Dates: end: 20140312
  2. EXELON PATCH [Suspect]
     Dosage: 9.5 MG/24 HOURS (18 MG DAILY)
     Route: 062
     Dates: start: 20140317

REACTIONS (1)
  - Hepatic encephalopathy [Recovering/Resolving]
